FAERS Safety Report 12088837 (Version 1)
Quarter: 2016Q1

REPORT INFORMATION
  Report Type: Report from Study
  Country: US (occurrence: US)
  Receive Date: 20160218
  Receipt Date: 20160218
  Transmission Date: 20160526
  Serious: Yes (Other)
  Sender: FDA-Public Use
  Company Number: US-MYLANLABS-2016M1006062

PATIENT

DRUGS (2)
  1. GEMCITABINE [Suspect]
     Active Substance: GEMCITABINE\GEMCITABINE HYDROCHLORIDE
     Indication: NEOPLASM
     Route: 048
  2. XELODA [Suspect]
     Active Substance: CAPECITABINE
     Indication: NEOPLASM
     Route: 048

REACTIONS (2)
  - Diarrhoea [Unknown]
  - Hyponatraemia [Unknown]
